FAERS Safety Report 5336900-8 (Version None)
Quarter: 2007Q2

REPORT INFORMATION
  Report Type: 
  Country: None (occurrence: None)
  Receive Date: 20070524
  Receipt Date: 20070524
  Transmission Date: 20071010
  Serious: Yes (Hospitalization)
  Sender: FDA-Public Use
  Company Number: None

PATIENT
  Sex: Female
  Weight: 63.6 kg

DRUGS (3)
  1. CYCLOPHOSPHAMIDE [Suspect]
     Dosage: 820 MG
     Dates: end: 20070425
  2. DOXORUBICIN HYDROCHLORIDE [Suspect]
     Dosage: 82 MG
     Dates: end: 20070425
  3. ARANESP [Concomitant]

REACTIONS (8)
  - CARDIAC FAILURE CONGESTIVE [None]
  - CARDIOMEGALY [None]
  - DEEP VEIN THROMBOSIS [None]
  - ESCHERICHIA INFECTION [None]
  - HYPOTENSION [None]
  - LUNG INFILTRATION [None]
  - PULMONARY HYPERTENSION [None]
  - RESPIRATORY FAILURE [None]
